FAERS Safety Report 16447867 (Version 4)
Quarter: 2020Q1

REPORT INFORMATION
  Report Type: Report from Study
  Country: None (occurrence: US)
  Receive Date: 20190619
  Receipt Date: 20200116
  Transmission Date: 20200409
  Serious: Yes (Other)
  Sender: FDA-Public Use
  Company Number: US-ABBVIE-18K-163-2583246-00

PATIENT
  Age: 49 Year
  Sex: Female

DRUGS (3)
  1. HUMIRA [Suspect]
     Active Substance: ADALIMUMAB
     Indication: RHEUMATOID ARTHRITIS
  2. METHOTREXATE. [Suspect]
     Active Substance: METHOTREXATE
     Indication: PRODUCT USED FOR UNKNOWN INDICATION
     Route: 065
  3. HUMIRA [Suspect]
     Active Substance: ADALIMUMAB
     Indication: ANKYLOSING SPONDYLITIS
     Route: 058
     Dates: start: 20181205

REACTIONS (33)
  - Joint swelling [Unknown]
  - Joint range of motion decreased [Not Recovered/Not Resolved]
  - Musculoskeletal stiffness [Unknown]
  - Depressed mood [Unknown]
  - Injection site bruising [Unknown]
  - Dyspnoea exertional [Unknown]
  - Feeling hot [Unknown]
  - Neck pain [Unknown]
  - Fatigue [Not Recovered/Not Resolved]
  - Mobility decreased [Not Recovered/Not Resolved]
  - Loss of personal independence in daily activities [Not Recovered/Not Resolved]
  - Somnolence [Unknown]
  - Musculoskeletal discomfort [Unknown]
  - Nasopharyngitis [Recovered/Resolved]
  - Back pain [Unknown]
  - Pain in extremity [Unknown]
  - Gastrointestinal polyp [Unknown]
  - Lethargy [Not Recovered/Not Resolved]
  - Erythema [Unknown]
  - Muscle disorder [Unknown]
  - Therapeutic response shortened [Unknown]
  - Arthralgia [Unknown]
  - Joint range of motion decreased [Not Recovered/Not Resolved]
  - Injection site erythema [Unknown]
  - Neck pain [Recovered/Resolved]
  - Urinary incontinence [Unknown]
  - Flushing [Unknown]
  - Arthralgia [Recovering/Resolving]
  - Drug ineffective [Unknown]
  - General physical health deterioration [Not Recovered/Not Resolved]
  - Eye inflammation [Recovering/Resolving]
  - Back pain [Recovered/Resolved]
  - Nausea [Unknown]

NARRATIVE: CASE EVENT DATE: 201812
